FAERS Safety Report 13639171 (Version 1)
Quarter: 2017Q2

REPORT INFORMATION
  Report Type: Spontaneous
  Country: US (occurrence: US)
  Receive Date: 20170609
  Receipt Date: 20170609
  Transmission Date: 20170830
  Serious: No
  Sender: FDA-Public Use
  Company Number: US-ROCHE-1382971

PATIENT
  Sex: Male

DRUGS (2)
  1. KLONOPIN [Suspect]
     Active Substance: CLONAZEPAM
     Indication: PRODUCT USED FOR UNKNOWN INDICATION
     Route: 048
     Dates: start: 1992
  2. VALIUM [Suspect]
     Active Substance: DIAZEPAM
     Indication: PRODUCT USED FOR UNKNOWN INDICATION
     Route: 065
     Dates: start: 1971

REACTIONS (9)
  - Hernia perforation [Unknown]
  - Drug ineffective [Unknown]
  - Laziness [Not Recovered/Not Resolved]
  - Product quality issue [Unknown]
  - Product counterfeit [Unknown]
  - Therapeutic response decreased [Unknown]
  - Hiatus hernia [Unknown]
  - Insomnia [Not Recovered/Not Resolved]
  - Blood glucose increased [Unknown]
